FAERS Safety Report 20124037 (Version 1)
Quarter: 2021Q4

REPORT INFORMATION
  Report Type: Spontaneous
  Country: JP (occurrence: JP)
  Receive Date: 20211129
  Receipt Date: 20211129
  Transmission Date: 20220303
  Serious: Yes (Other)
  Sender: FDA-Public Use
  Company Number: JP-Techdow-2021Techdow000766

PATIENT
  Age: 48 Year
  Sex: Male
  Weight: 71.5 kg

DRUGS (1)
  1. HEPARIN SODIUM [Suspect]
     Active Substance: HEPARIN SODIUM
     Indication: Anticoagulant therapy
     Dosage: 32000 U/DAY

REACTIONS (1)
  - Haematoma muscle [Recovering/Resolving]
